FAERS Safety Report 8463389-2 (Version None)
Quarter: 2012Q2

REPORT INFORMATION
  Report Type: 
  Country: None (occurrence: None)
  Receive Date: 20120625
  Receipt Date: 20120619
  Transmission Date: 20120825
  Serious: Yes (Hospitalization, Disabling, Other)
  Sender: FDA-Public Use
  Company Number: US-MERCK-1202USA02461

PATIENT
  Age: 55 Year
  Sex: Female

DRUGS (5)
  1. FOSAMAX [Suspect]
     Route: 048
  2. ZOVIRAX [Concomitant]
     Indication: ORAL HERPES
     Route: 065
     Dates: start: 19970101, end: 20060101
  3. FOSAMAX [Suspect]
     Route: 048
  4. FOSAMAX [Suspect]
     Indication: OSTEOPOROSIS
     Route: 048
     Dates: start: 19980202, end: 20060312
  5. FOSAMAX [Suspect]
     Route: 048

REACTIONS (23)
  - PAIN IN EXTREMITY [None]
  - NAUSEA [None]
  - FOOT DEFORMITY [None]
  - BLADDER SPASM [None]
  - LOW TURNOVER OSTEOPATHY [None]
  - SQUAMOUS CELL CARCINOMA OF SKIN [None]
  - MUSCLE STRAIN [None]
  - CONTUSION [None]
  - ORTHOSTATIC HYPOTENSION [None]
  - VOMITING [None]
  - PLANTAR FASCIITIS [None]
  - ATROPHY [None]
  - BACK PAIN [None]
  - MENISCUS LESION [None]
  - NODULE [None]
  - STRESS FRACTURE [None]
  - ROTATOR CUFF SYNDROME [None]
  - URINARY TRACT INFECTION [None]
  - FALL [None]
  - DEAFNESS NEUROSENSORY [None]
  - IMPETIGO [None]
  - FEMUR FRACTURE [None]
  - ACTINIC KERATOSIS [None]
